FAERS Safety Report 21393556 (Version 2)
Quarter: 2022Q4

REPORT INFORMATION
  Report Type: Report from Study
  Country: US (occurrence: US)
  Receive Date: 20220929
  Receipt Date: 20221027
  Transmission Date: 20230113
  Serious: Yes (Hospitalization, Other)
  Sender: FDA-Public Use
  Company Number: US-ABBVIE-4130169

PATIENT
  Age: 62 Year
  Sex: Male

DRUGS (2)
  1. IMBRUVICA [Suspect]
     Active Substance: IBRUTINIB
     Indication: B-cell lymphoma
     Route: 048
     Dates: start: 202208
  2. IMBRUVICA [Suspect]
     Active Substance: IBRUTINIB
     Indication: B-cell lymphoma
     Route: 048

REACTIONS (12)
  - Ocular lymphoma [Unknown]
  - Decreased appetite [Unknown]
  - Depression [Unknown]
  - Fatigue [Unknown]
  - Dehydration [Unknown]
  - Confusional state [Unknown]
  - Sleep disorder [Unknown]
  - Dyspnoea [Unknown]
  - Syncope [Unknown]
  - Blindness unilateral [Unknown]
  - Pyrexia [Unknown]
  - Epistaxis [Unknown]

NARRATIVE: CASE EVENT DATE: 20221018
